FAERS Safety Report 7534781-5 (Version None)
Quarter: 2011Q2

REPORT INFORMATION
  Report Type: 
  Country: None (occurrence: None)
  Receive Date: 20110609
  Receipt Date: 20080804
  Transmission Date: 20111010
  Serious: Yes (Hospitalization)
  Sender: FDA-Public Use
  Company Number: PHHY2008IE14576

PATIENT
  Sex: Male

DRUGS (8)
  1. PROCHLORPERAZINE [Concomitant]
     Dosage: 5 MG, UNK
  2. CLOZAPINE [Suspect]
     Indication: SCHIZOPHRENIA
     Dosage: UNK
     Dates: start: 20050621
  3. VALPROATE SODIUM [Concomitant]
     Dosage: 400 MG, NOCTE
  4. TRITACE [Concomitant]
     Dosage: 1.25 MG, MANE
  5. EFFEXOR [Concomitant]
     Dosage: 150 MG, MANE
  6. CARDICOR [Concomitant]
     Dosage: 5 MG, MANE
  7. DIAZEPAM [Concomitant]
     Dosage: 5 MG, BID
  8. ZIMOVANE [Concomitant]
     Dosage: 75 MG NOCTE

REACTIONS (1)
  - ANAL ABSCESS [None]
